FAERS Safety Report 8010713-0 (Version None)
Quarter: 2011Q4

REPORT INFORMATION
  Report Type: 
  Country: None (occurrence: None)
  Receive Date: 20111228
  Receipt Date: 20111215
  Transmission Date: 20120403
  Serious: No
  Sender: FDA-Public Use
  Company Number: FR-SANOFI-AVENTIS-2011SA077720

PATIENT
  Age: 37 Year
  Sex: Female
  Weight: 57 kg

DRUGS (1)
  1. ARAVA [Suspect]
     Route: 048
     Dates: start: 20100914, end: 20110502

REACTIONS (1)
  - MATERNAL EXPOSURE DURING PREGNANCY [None]
